FAERS Safety Report 21362157 (Version 1)
Quarter: 2022Q3

REPORT INFORMATION
  Report Type: Report from Study
  Country: US (occurrence: US)
  Receive Date: 20220922
  Receipt Date: 20220922
  Transmission Date: 20221027
  Serious: No
  Sender: FDA-Public Use
  Company Number: US-ABBVIE-4128236

PATIENT
  Sex: Male

DRUGS (2)
  1. SKYRIZI [Suspect]
     Active Substance: RISANKIZUMAB-RZAA
     Indication: Psoriasis
     Dosage: WEEK 0 DOSE
     Route: 058
     Dates: start: 20220708
  2. SKYRIZI [Suspect]
     Active Substance: RISANKIZUMAB-RZAA
     Dosage: WEEK 4 DOSE, WEEK 4 AND EVERY 12 WEEKS THEREAFTER
     Route: 058
     Dates: start: 202208

REACTIONS (1)
  - Drug ineffective [Unknown]

NARRATIVE: CASE EVENT DATE: 20220101
